FAERS Safety Report 7623225-0 (Version None)
Quarter: 2011Q3

REPORT INFORMATION
  Report Type: 
  Country: None (occurrence: None)
  Receive Date: 20110720
  Receipt Date: 20110715
  Transmission Date: 20111222
  Serious: Yes (Hospitalization)
  Sender: FDA-Public Use
  Company Number: PHHO2008US03520

PATIENT
  Sex: Male
  Weight: 89.8 kg

DRUGS (6)
  1. NEORAL [Concomitant]
     Indication: IMMUNOSUPPRESSION
     Dosage: 200 MG, BID
     Route: 048
     Dates: start: 20080303
  2. NEORAL [Concomitant]
     Dosage: 225 MG, BID
     Route: 048
     Dates: start: 20080317
  3. ZORTRESS [Suspect]
     Indication: HEART TRANSPLANT
     Dosage: 0.75 MG, UNK
     Route: 048
     Dates: start: 20071214
  4. PREDNISONE [Concomitant]
     Dosage: 12.5 MG, BID
     Route: 048
     Dates: start: 20080321
  5. ZORTRESS [Suspect]
     Dosage: 0.75 MG, BID
     Route: 048
     Dates: start: 20080214
  6. PREDNISONE [Concomitant]
     Indication: IMMUNOSUPPRESSION
     Dosage: 20 MG, BID
     Route: 048
     Dates: start: 20080303

REACTIONS (4)
  - CHEST PAIN [None]
  - PULMONARY EMBOLISM [None]
  - MEDIASTINITIS [None]
  - INSOMNIA [None]
